FAERS Safety Report 9128049 (Version 5)
Quarter: 2013Q4

REPORT INFORMATION
  Report Type: Spontaneous
  Country: US (occurrence: US)
  Receive Date: 20130228
  Receipt Date: 20131209
  Transmission Date: 20140711
  Serious: Yes (Hospitalization, Other)
  Sender: FDA-Public Use
  Company Number: US-009507513-1302USA012761

PATIENT
  Sex: Female
  Weight: 70.75 kg

DRUGS (3)
  1. FOSAMAX [Suspect]
     Indication: OSTEOPOROSIS
     Dosage: UNK
     Route: 048
     Dates: start: 20000705
  2. FOSAMAX [Suspect]
     Indication: OSTEOPENIA
     Dosage: 35 MG, UNK
     Route: 048
     Dates: end: 20080501
  3. ALENDRONATE SODIUM [Suspect]
     Indication: OSTEOPOROSIS
     Dosage: 35 MG, UNK
     Route: 048
     Dates: start: 20080501, end: 20100225

REACTIONS (24)
  - Femur fracture [Recovered/Resolved]
  - Intramedullary rod insertion [Unknown]
  - Haemorrhagic anaemia [Recovering/Resolving]
  - Renal failure chronic [Not Recovered/Not Resolved]
  - Foot fracture [Unknown]
  - Hypertension [Unknown]
  - Hypercholesterolaemia [Unknown]
  - Adverse event [Unknown]
  - Non-cardiac chest pain [Unknown]
  - Urinary tract infection [Unknown]
  - Carpal tunnel decompression [Unknown]
  - Hypothyroidism [Not Recovered/Not Resolved]
  - Cataract operation [Unknown]
  - Subcutaneous haematoma [Recovering/Resolving]
  - Meniscus injury [Unknown]
  - Piriformis syndrome [Unknown]
  - Bursitis [Unknown]
  - Osteoarthritis [Unknown]
  - Exostosis [Unknown]
  - Exostosis [Unknown]
  - Abdominal pain [Unknown]
  - Gastrooesophageal reflux disease [Unknown]
  - Oedema peripheral [Recovered/Resolved]
  - Pain in extremity [Unknown]
